FAERS Safety Report 25498623 (Version 2)
Quarter: 2025Q4

REPORT INFORMATION
  Report Type: Report from Study
  Country: US (occurrence: US)
  Receive Date: 20250701
  Receipt Date: 20251014
  Transmission Date: 20260118
  Serious: Yes (Other)
  Sender: BAYER HEALTHCARE PHARMACEUTICALS INC.
  Company Number: US-BAYER-2025A029091

PATIENT
  Age: 47 Year
  Sex: Male

DRUGS (10)
  1. ADEMPAS [Suspect]
     Active Substance: RIOCIGUAT
     Indication: Pulmonary arterial hypertension
     Dosage: UNK
  2. ADEMPAS [Suspect]
     Active Substance: RIOCIGUAT
     Indication: Pulmonary hypertension
     Dosage: 2.5 MG, TID
     Route: 048
     Dates: start: 201606
  3. ADEMPAS [Suspect]
     Active Substance: RIOCIGUAT
     Indication: Pulmonary arterial hypertension
     Dosage: 0.5 MG, TID
     Route: 048
     Dates: start: 202501
  4. ADEMPAS [Suspect]
     Active Substance: RIOCIGUAT
     Indication: Pulmonary arterial hypertension
     Dosage: 1 MG, TID
     Route: 048
     Dates: start: 202502
  5. ADEMPAS [Suspect]
     Active Substance: RIOCIGUAT
     Indication: Pulmonary arterial hypertension
     Dosage: 1.5 MG, TID
     Route: 048
     Dates: start: 202503
  6. ADEMPAS [Suspect]
     Active Substance: RIOCIGUAT
     Indication: Pulmonary arterial hypertension
     Dosage: 2.5 MG, TID
     Route: 048
     Dates: start: 202504
  7. UPTRAVI [Suspect]
     Active Substance: SELEXIPAG
  8. UPTRAVI [Suspect]
     Active Substance: SELEXIPAG
     Dosage: 800MCG BID
  9. UPTRAVI [Suspect]
     Active Substance: SELEXIPAG
     Dosage: 600MCG BID
     Dates: start: 202506
  10. TYLENOL [Suspect]
     Active Substance: ACETAMINOPHEN
     Indication: Pain

REACTIONS (31)
  - Optic disc oedema [None]
  - Pulmonary artery dilatation [None]
  - Musculoskeletal chest pain [Not Recovered/Not Resolved]
  - Hepatic cirrhosis [None]
  - Muscle strain [None]
  - Pain [Recovered/Resolved]
  - Paraesthesia [None]
  - Flushing [None]
  - Brain fog [Not Recovered/Not Resolved]
  - Pain in extremity [Recovered/Resolved]
  - Vomiting [Not Recovered/Not Resolved]
  - Feeding disorder [None]
  - Malaise [None]
  - Pain in jaw [None]
  - Pain in extremity [Recovering/Resolving]
  - Pain [None]
  - Arthralgia [Recovering/Resolving]
  - Pain [Recovering/Resolving]
  - Back pain [Recovering/Resolving]
  - Mobility decreased [Recovering/Resolving]
  - Diarrhoea [Not Recovered/Not Resolved]
  - Headache [Not Recovered/Not Resolved]
  - Nausea [None]
  - Vomiting [None]
  - Diarrhoea [Recovering/Resolving]
  - Adverse event [Recovering/Resolving]
  - Extra dose administered [None]
  - Product dose omission issue [None]
  - Product dose omission issue [None]
  - Product dose omission issue [None]
  - Headache [None]

NARRATIVE: CASE EVENT DATE: 20250101
